FAERS Safety Report 16382108 (Version 4)
Quarter: 2019Q3

REPORT INFORMATION
  Report Type: Spontaneous
  Country: CN (occurrence: CN)
  Receive Date: 20190603
  Receipt Date: 20190912
  Transmission Date: 20191004
  Serious: Yes (Other)
  Sender: FDA-Public Use
  Company Number: CN-GILEAD-2019-0411204

PATIENT
  Age: 40 Year
  Sex: Male

DRUGS (1)
  1. VIREAD [Suspect]
     Active Substance: TENOFOVIR DISOPROXIL FUMARATE
     Indication: HEPATITIS B
     Dosage: 1 DOSAGE FORM, QD
     Route: 048

REACTIONS (3)
  - Prescription drug used without a prescription [Recovered/Resolved]
  - Osteoporosis [Recovering/Resolving]
  - Nephropathy toxic [Recovering/Resolving]
